FAERS Safety Report 8222863-4 (Version None)
Quarter: 2012Q1

REPORT INFORMATION
  Report Type: 
  Country: None (occurrence: None)
  Receive Date: 20120320
  Receipt Date: 20120313
  Transmission Date: 20120608
  Serious: Yes (Life-Threatening, Hospitalization)
  Sender: FDA-Public Use
  Company Number: US-PFIZER INC-K201100560

PATIENT
  Sex: Female

DRUGS (2)
  1. BACTRIM DS [Suspect]
     Dosage: 800 MG, UNK
     Dates: start: 20110215
  2. BACTRIM DS [Suspect]
     Dosage: 160 MG, 2X/DAY

REACTIONS (3)
  - RASH [None]
  - SWELLING [None]
  - HYPERSENSITIVITY [None]
